FAERS Safety Report 24404756 (Version 1)
Quarter: 2024Q4

REPORT INFORMATION
  Report Type: Spontaneous
  Country: US (occurrence: None)
  Receive Date: 20241004
  Receipt Date: 20241004
  Transmission Date: 20250115
  Serious: No
  Sender: Public
  Company Number: None

PATIENT
  Age: 73 Year
  Sex: Male
  Weight: 77 kg

DRUGS (2)
  1. RIVAROXABAN [Suspect]
     Active Substance: RIVAROXABAN
     Indication: Vascular device user
     Dosage: FREQUENCY : DAILY;?
     Route: 048
  2. CLOPIDOGREL BISULFATE [Suspect]
     Active Substance: CLOPIDOGREL BISULFATE
     Dosage: FREQUENCY : DAILY;?
     Route: 048

REACTIONS (5)
  - Anaemia [None]
  - Gastrointestinal haemorrhage [None]
  - Gastric ulcer [None]
  - Gastritis erosive [None]
  - Gastrointestinal disorder [None]

NARRATIVE: CASE EVENT DATE: 20240505
